FAERS Safety Report 6096745-0 (Version None)
Quarter: 2009Q1

REPORT INFORMATION
  Report Type: 
  Country: None (occurrence: None)
  Receive Date: 20090227
  Receipt Date: 20090218
  Transmission Date: 20090719
  Serious: Yes (Hospitalization)
  Sender: FDA-Public Use
  Company Number: US-BIOGENIDEC-2007BI012102

PATIENT
  Age: 60 Year
  Sex: Female
  Weight: 70 kg

DRUGS (4)
  1. AVONEX [Suspect]
     Indication: MULTIPLE SCLEROSIS
     Route: 030
     Dates: start: 19991101, end: 20040512
  2. AVONEX [Suspect]
     Route: 030
     Dates: start: 20050628, end: 20060103
  3. AVONEX [Suspect]
     Route: 030
     Dates: start: 20060301, end: 20070521
  4. AVONEX [Suspect]
     Route: 030
     Dates: start: 20070702

REACTIONS (4)
  - DECREASED IMMUNE RESPONSIVENESS [None]
  - PEMPHIGOID [None]
  - PHARYNGITIS STREPTOCOCCAL [None]
  - RASH PRURITIC [None]
